FAERS Safety Report 20015679 (Version 1)
Quarter: 2021Q4

REPORT INFORMATION
  Report Type: Spontaneous
  Country: US (occurrence: None)
  Receive Date: 20211101
  Receipt Date: 20211101
  Transmission Date: 20220304
  Serious: No
  Sender: FDA-Public Use
  Company Number: None

PATIENT
  Age: 39 Year
  Sex: Female
  Weight: 95.4 kg

DRUGS (8)
  1. REGEN-COV [Suspect]
     Active Substance: CASIRIVIMAB\IMDEVIMAB
     Indication: SARS-CoV-2 test positive
     Dosage: OTHER QUANTITY : 4 INJECTION(S);?
     Route: 058
     Dates: start: 20211031, end: 20211031
  2. AZITHROMYCIN [Concomitant]
     Active Substance: AZITHROMYCIN
  3. VITAMIN C [Concomitant]
     Active Substance: ASCORBIC ACID
  4. VITAMIN E [Concomitant]
     Active Substance: .ALPHA.-TOCOPHEROL
  5. VITAMIN D [Concomitant]
     Active Substance: VITAMIN D NOS
  6. ZINC [Concomitant]
     Active Substance: ZINC
  7. QUERCITIN [Concomitant]
  8. LYSINE [Concomitant]
     Active Substance: LYSINE

REACTIONS (5)
  - Nausea [None]
  - Headache [None]
  - Gastrointestinal disorder [None]
  - Injection site urticaria [None]
  - Injection site urticaria [None]

NARRATIVE: CASE EVENT DATE: 20211031
